FAERS Safety Report 7907525-2 (Version None)
Quarter: 2011Q4

REPORT INFORMATION
  Report Type: 
  Country: None (occurrence: None)
  Receive Date: 20111109
  Receipt Date: 20111109
  Transmission Date: 20120403
  Serious: Yes (Hospitalization)
  Sender: FDA-Public Use
  Company Number: None

PATIENT
  Sex: Female
  Weight: 59 kg

DRUGS (2)
  1. TAXOL [Suspect]
     Dosage: 267 MG
     Dates: end: 20110720
  2. CARBOPLATIN [Suspect]
     Dosage: 373 MG
     Dates: end: 20110720

REACTIONS (1)
  - CEREBRAL INFARCTION [None]
